FAERS Safety Report 22529290 (Version 1)
Quarter: 2023Q2

REPORT INFORMATION
  Report Type: Report from Study
  Country: TW (occurrence: TW)
  Receive Date: 20230607
  Receipt Date: 20230607
  Transmission Date: 20230721
  Serious: Yes (Other)
  Sender: FDA-Public Use
  Company Number: TW-BAYER-2023A076442

PATIENT
  Age: 67 Year
  Sex: Male

DRUGS (1)
  1. EYLEA [Suspect]
     Active Substance: AFLIBERCEPT
     Indication: Retinal vein occlusion
     Dosage: 0.05 ML SOLUTION FOR INJECTION
     Route: 031

REACTIONS (13)
  - Deafness unilateral [Unknown]
  - Deafness unilateral [Unknown]
  - Autoimmune thyroiditis [Unknown]
  - Retinal vascular occlusion [Unknown]
  - Macular degeneration [Unknown]
  - Cataract [Unknown]
  - Cerebrovascular accident [Unknown]
  - Ocular discomfort [Unknown]
  - Retinal disorder [Unknown]
  - Conjunctivitis [Unknown]
  - Metamorphopsia [Unknown]
  - Ocular hyperaemia [Unknown]
  - Vision blurred [Unknown]

NARRATIVE: CASE EVENT DATE: 20180607
